FAERS Safety Report 7630283-6 (Version None)
Quarter: 2011Q3

REPORT INFORMATION
  Report Type: 
  Country: None (occurrence: None)
  Receive Date: 20110722
  Receipt Date: 20110709
  Transmission Date: 20111222
  Serious: Yes (Hospitalization, Other)
  Sender: FDA-Public Use
  Company Number: PHHY2011JP61782

PATIENT
  Age: 59 Year
  Sex: Male

DRUGS (3)
  1. LANSOPRAZOLE [Suspect]
     Dosage: 15 MG, QD
  2. FLUVASTATIN SODIUM [Suspect]
     Dosage: 20 MG, QD
     Route: 048
  3. ASPIRIN [Suspect]
     Dosage: 10 MG, QD

REACTIONS (11)
  - OVERLAP SYNDROME [None]
  - ALANINE AMINOTRANSFERASE INCREASED [None]
  - LYMPHOCYTIC INFILTRATION [None]
  - LIVER INJURY [None]
  - BILIARY CIRRHOSIS PRIMARY [None]
  - ANTINUCLEAR ANTIBODY INCREASED [None]
  - GAMMA-GLUTAMYLTRANSFERASE INCREASED [None]
  - ASPARTATE AMINOTRANSFERASE INCREASED [None]
  - BLOOD IMMUNOGLOBULIN G INCREASED [None]
  - JAUNDICE [None]
  - AUTOIMMUNE HEPATITIS [None]
